FAERS Safety Report 17404082 (Version 1)
Quarter: 2020Q1

REPORT INFORMATION
  Report Type: Spontaneous
  Country: US (occurrence: US)
  Receive Date: 20200211
  Receipt Date: 20200211
  Transmission Date: 20200409
  Serious: No
  Sender: FDA-Public Use
  Company Number: US-ENDO PHARMACEUTICALS INC-2019-101058

PATIENT
  Age: 71 Year
  Sex: Male

DRUGS (1)
  1. METHYLPREDNISOLONE. [Suspect]
     Active Substance: METHYLPREDNISOLONE
     Indication: POLYMYALGIA RHEUMATICA
     Dosage: 4 MG, DAILY (1 TABLET DAILY)
     Route: 065
     Dates: start: 201811

REACTIONS (4)
  - Off label use [Not Recovered/Not Resolved]
  - Product substitution issue [Unknown]
  - Product physical issue [Unknown]
  - Pain in extremity [Not Recovered/Not Resolved]

NARRATIVE: CASE EVENT DATE: 201811
